FAERS Safety Report 23378017 (Version 1)
Quarter: 2024Q1

REPORT INFORMATION
  Report Type: Spontaneous
  Country: US (occurrence: US)
  Receive Date: 20240108
  Receipt Date: 20240108
  Transmission Date: 20240409
  Serious: Yes (Other)
  Sender: FDA-Public Use
  Company Number: US-SA-SAC20240108000089

PATIENT
  Sex: Female
  Weight: 70.306 kg

DRUGS (3)
  1. DUPIXENT [Suspect]
     Active Substance: DUPILUMAB
     Indication: Nasal polyps
     Dosage: 300 MG, QOW
     Route: 058
  2. BOSULIF [Concomitant]
     Active Substance: BOSUTINIB MONOHYDRATE
  3. PROLIA [Concomitant]
     Active Substance: DENOSUMAB

REACTIONS (7)
  - Chronic myeloid leukaemia [Unknown]
  - Fatigue [Unknown]
  - Hepatic enzyme increased [Unknown]
  - Muscular weakness [Unknown]
  - Feeling abnormal [Unknown]
  - Myalgia [Unknown]
  - Arthralgia [Unknown]
